FAERS Safety Report 16137384 (Version 3)
Quarter: 2019Q2

REPORT INFORMATION
  Report Type: Spontaneous
  Country: PT (occurrence: PT)
  Receive Date: 20190330
  Receipt Date: 20190514
  Transmission Date: 20190711
  Serious: Yes (Hospitalization, Other)
  Sender: FDA-Public Use
  Company Number: PT-AUROBINDO-AUR-APL-2019-016665

PATIENT

DRUGS (4)
  1. DARUNAVIR [Interacting]
     Active Substance: DARUNAVIR
     Indication: HIV INFECTION
     Dosage: UNK
     Route: 065
  2. RITONAVIR. [Interacting]
     Active Substance: RITONAVIR
     Indication: HIV INFECTION
     Dosage: UNK
     Route: 065
  3. TENOFOVIR [Suspect]
     Active Substance: TENOFOVIR
     Indication: HIV INFECTION
     Dosage: UNK
     Route: 065
  4. EMTRICITABINE [Interacting]
     Active Substance: EMTRICITABINE
     Indication: HIV INFECTION
     Dosage: UNK
     Route: 065

REACTIONS (20)
  - Fanconi syndrome [Recovered/Resolved]
  - Malaise [Recovering/Resolving]
  - Drug interaction [Recovered/Resolved]
  - Metabolic acidosis [Recovered/Resolved]
  - Crystal nephropathy [Recovered/Resolved]
  - Tubulointerstitial nephritis [Recovering/Resolving]
  - Dehydration [Recovering/Resolving]
  - Fatigue [Recovering/Resolving]
  - Glycosuria [Recovering/Resolving]
  - Acute kidney injury [Recovered/Resolved]
  - Anaemia [Recovering/Resolving]
  - Urine abnormality [Recovered/Resolved]
  - Cachexia [Recovering/Resolving]
  - Hypotension [Recovering/Resolving]
  - Nephropathy toxic [Recovering/Resolving]
  - Proteinuria [Recovering/Resolving]
  - Mitochondrial DNA depletion [Recovering/Resolving]
  - Pallor [Recovering/Resolving]
  - Decreased appetite [Recovering/Resolving]
  - Renal tubular dysfunction [Recovered/Resolved]
